FAERS Safety Report 11680249 (Version 3)
Quarter: 2015Q4

REPORT INFORMATION
  Report Type: Spontaneous
  Country: US (occurrence: US)
  Receive Date: 20151027
  Receipt Date: 20151110
  Transmission Date: 20160304
  Serious: No
  Sender: FDA-Public Use
  Company Number: US-ELI_LILLY_AND_COMPANY-US201011002238

PATIENT
  Age: 81 Year
  Sex: Female

DRUGS (7)
  1. CALCIUM W/VITAMINS NOS [Concomitant]
  2. FORTEO [Suspect]
     Active Substance: TERIPARATIDE
     Dosage: 20 UG, DAILY (1/D)
  3. FORTEO [Suspect]
     Active Substance: TERIPARATIDE
     Dosage: 20 UG, DAILY (1/D)
  4. FORTEO [Suspect]
     Active Substance: TERIPARATIDE
     Indication: OSTEOPOROSIS
     Dosage: 20 UG, DAILY (1/D)
     Dates: start: 201008
  5. FORTEO [Suspect]
     Active Substance: TERIPARATIDE
     Dosage: 20 UG, DAILY (1/D)
  6. FORTEO [Suspect]
     Active Substance: TERIPARATIDE
     Dosage: 20 UG, QD
  7. CALCIUM [Concomitant]
     Active Substance: CALCIUM
     Dosage: 600 MG, UNK

REACTIONS (10)
  - Eye disorder [Unknown]
  - Decreased appetite [Unknown]
  - Constipation [Unknown]
  - Headache [Recovered/Resolved]
  - Incorrect product storage [Unknown]
  - Chest pain [Unknown]
  - Fear [Unknown]
  - Dysgeusia [Unknown]
  - Mitral valve incompetence [Unknown]
  - Nervousness [Unknown]

NARRATIVE: CASE EVENT DATE: 201105
